FAERS Safety Report 18821895 (Version 1)
Quarter: 2021Q1

REPORT INFORMATION
  Report Type: Spontaneous
  Country: US (occurrence: US)
  Receive Date: 20210201
  Receipt Date: 20210201
  Transmission Date: 20210419
  Serious: Yes (Other)
  Sender: FDA-Public Use
  Company Number: None

PATIENT
  Age: 69 Year
  Sex: Male

DRUGS (1)
  1. VANCOMYCIN (VANCOMYCIN HCL 1.25GM/VIAL INJ) [Suspect]
     Active Substance: VANCOMYCIN
     Indication: DIABETIC FOOT INFECTION
     Dosage: ?          OTHER STRENGTH:1.25GM/VIAL;?
     Route: 042
     Dates: start: 20201222, end: 20201222

REACTIONS (8)
  - Infusion related reaction [None]
  - Hypotension [None]
  - Hyperhidrosis [None]
  - Pruritus [None]
  - Dysphonia [None]
  - Respiratory depression [None]
  - Blood glucose decreased [None]
  - Urticaria [None]

NARRATIVE: CASE EVENT DATE: 20201222
